FAERS Safety Report 7330875-8 (Version None)
Quarter: 2011Q1

REPORT INFORMATION
  Report Type: 
  Country: None (occurrence: None)
  Receive Date: 20110304
  Receipt Date: 20110221
  Transmission Date: 20110831
  Serious: Yes (Other)
  Sender: FDA-Public Use
  Company Number: US-ELI_LILLY_AND_COMPANY-US201002002663

PATIENT
  Sex: Female

DRUGS (4)
  1. ATENOLOL [Concomitant]
  2. FORTEO [Suspect]
     Dosage: 20 UG, DAILY (1/D)
     Route: 065
     Dates: start: 20100302
  3. FORTEO [Suspect]
     Indication: OSTEOPOROSIS
     Dosage: 20 UG, DAILY (1/D)
     Route: 065
     Dates: start: 20100120, end: 20100101
  4. LISINOPRIL [Concomitant]

REACTIONS (7)
  - BREAST CANCER [None]
  - HEART RATE INCREASED [None]
  - DIZZINESS [None]
  - VISUAL IMPAIRMENT [None]
  - ADVERSE DRUG REACTION [None]
  - DRUG DOSE OMISSION [None]
  - ATRIAL FIBRILLATION [None]
